FAERS Safety Report 25952136 (Version 1)
Quarter: 2025Q4

REPORT INFORMATION
  Report Type: Spontaneous
  Country: US (occurrence: None)
  Receive Date: 20251022
  Receipt Date: 20251022
  Transmission Date: 20260118
  Serious: Yes (Hospitalization)
  Sender: FDA-CTU
  Company Number: None

PATIENT
  Sex: Male

DRUGS (10)
  1. TACROLIMUS [Suspect]
     Active Substance: TACROLIMUS
     Indication: Renal transplant
     Dosage: FREQUENCY : AS DIRECTED;?FREQ: TAKE 2 CAPSULES (2 MG) BY MOUTH EVERY MORNING AND 1 CAPSULE (1 MG) EVERY EVENING.?
     Route: 048
     Dates: start: 20241001
  2. BAOSIMI TWO POW [Concomitant]
  3. CLONIDINE [Concomitant]
     Active Substance: CLONIDINE
  4. EVEROLIMUS [Concomitant]
     Active Substance: EVEROLIMUS
  5. FENTANYL [Concomitant]
     Active Substance: FENTANYL
  6. HYDRALAZINE [Concomitant]
     Active Substance: HYDRALAZINE HYDROCHLORIDE
  7. MEGESTROL AC [Concomitant]
  8. METHOCARBAMOL [Concomitant]
     Active Substance: METHOCARBAMOL
  9. METOCLOPRAMIDE [Concomitant]
     Active Substance: METOCLOPRAMIDE
  10. NIFEDIPINE [Concomitant]
     Active Substance: NIFEDIPINE

REACTIONS (1)
  - Emergency care [None]
